FAERS Safety Report 6185505-8 (Version None)
Quarter: 2009Q2

REPORT INFORMATION
  Report Type: 
  Country: None (occurrence: None)
  Receive Date: 20090511
  Receipt Date: 20090506
  Transmission Date: 20091009
  Serious: Yes (Other)
  Sender: FDA-Public Use
  Company Number: PHHY2009IT17202

PATIENT
  Sex: Male

DRUGS (3)
  1. RASILEZ [Suspect]
     Indication: HYPERTENSION
     Dosage: 150 MG DAILY
     Route: 048
     Dates: start: 20090406, end: 20090410
  2. LASIX [Concomitant]
     Dosage: 25 MG, UNK
     Route: 048
     Dates: start: 20090320
  3. MICARDIS [Concomitant]
     Dosage: 80 MG, UNK
     Route: 048
     Dates: start: 20090320

REACTIONS (2)
  - URINARY RETENTION [None]
  - WEIGHT INCREASED [None]
